FAERS Safety Report 7550631-5 (Version None)
Quarter: 2011Q2

REPORT INFORMATION
  Report Type: 
  Country: None (occurrence: None)
  Receive Date: 20110616
  Receipt Date: 20110606
  Transmission Date: 20111010
  Serious: Yes (Death, Hospitalization)
  Sender: FDA-Public Use
  Company Number: IT-CELGENEUS-083-20785-10120496

PATIENT
  Sex: Male

DRUGS (16)
  1. LASIX [Concomitant]
     Dosage: .5 TABLET
     Route: 048
  2. PRILOSEC [Concomitant]
     Dosage: 1 DOSAGE FORMS
     Route: 048
  3. CARDICOR [Concomitant]
     Dosage: 1 TABLET
     Route: 048
  4. LUVION [Concomitant]
     Dosage: 1 TABLET
     Route: 048
  5. AVODART [Concomitant]
     Dosage: 1 CAPSULE
     Route: 048
  6. PRADIF [Concomitant]
     Dosage: 1 CAPSULE
     Route: 048
  7. THALIDOMIDE [Suspect]
     Dosage: 100 MILLIGRAM
     Route: 048
     Dates: start: 20101022, end: 20101101
  8. THALIDOMIDE [Suspect]
     Dosage: 125 MILLIGRAM
     Route: 048
     Dates: start: 20101102, end: 20101107
  9. THALIDOMIDE [Suspect]
     Dosage: 150 MILLIGRAM
     Route: 048
     Dates: start: 20101108, end: 20101202
  10. ACYCLOVIR [Concomitant]
     Dosage: 1 TABLET
     Route: 048
  11. ENOXAPARIN SODIUM [Concomitant]
     Dosage: 1 VIAL
     Route: 048
  12. VFEND [Concomitant]
     Dosage: 1 TABLET
     Route: 048
  13. TAPAZOLE [Concomitant]
     Dosage: 1 TABLET
     Route: 048
  14. THALIDOMIDE [Suspect]
     Indication: MULTIPLE MYELOMA
     Dosage: 50 MILLIGRAM
     Route: 048
     Dates: start: 20100804, end: 20101021
  15. CORDARONE [Concomitant]
     Dosage: 1 TABLET
     Route: 048
  16. ALMARYTM [Concomitant]
     Dosage: 1 TABLET
     Route: 048

REACTIONS (1)
  - BRONCHOPNEUMONIA [None]
